FAERS Safety Report 7308119-2 (Version None)
Quarter: 2011Q1

REPORT INFORMATION
  Report Type: 
  Country: None (occurrence: None)
  Receive Date: 20110210
  Receipt Date: 20110120
  Transmission Date: 20110831
  Serious: Yes (Death)
  Sender: FDA-Public Use
  Company Number: AE11-015-36

PATIENT
  Age: 50 Year
  Sex: Female

DRUGS (3)
  1. LORCET (ACETAMINOPHEN/HYDROCODONE) [Suspect]
  2. AMITRIPTYLINE [Suspect]
  3. TRANDOLAPRIL [Suspect]

REACTIONS (4)
  - COMPLETED SUICIDE [None]
  - RESPIRATORY ARREST [None]
  - CARDIAC ARREST [None]
  - MULTIPLE DRUG OVERDOSE INTENTIONAL [None]
